FAERS Safety Report 5424569-3 (Version None)
Quarter: 2007Q3

REPORT INFORMATION
  Report Type: 
  Country: None (occurrence: None)
  Receive Date: 20070726
  Receipt Date: 20070625
  Transmission Date: 20080115
  Serious: No
  Sender: FDA-Public Use
  Company Number: POMP-11108

PATIENT
  Age: 49 Year
  Sex: Female
  Weight: 92.9874 kg

DRUGS (5)
  1. MYOZYME [Suspect]
     Indication: GLYCOGEN STORAGE DISEASE TYPE II
     Dosage: 20 MG/KG Q2WKS IV
     Route: 042
     Dates: start: 20070404
  2. TRIAMTERENE AND HYDROCHLOROTHIAZIDE [Concomitant]
  3. PREVACID [Concomitant]
  4. KLONOPIN [Concomitant]
  5. OXYCONTIN [Concomitant]

REACTIONS (2)
  - DIZZINESS [None]
  - NAUSEA [None]
